FAERS Safety Report 5011137-0 (Version None)
Quarter: 2006Q2

REPORT INFORMATION
  Report Type: 
  Country: None (occurrence: None)
  Receive Date: 20060523
  Receipt Date: 20060523
  Transmission Date: 20061013
  Serious: Yes (Hospitalization)
  Sender: FDA-Public Use
  Company Number: None

PATIENT
  Age: 44 Year
  Sex: Male

DRUGS (1)
  1. POTASSIUM PENECILLIN G [Suspect]
     Indication: ENDOCARDITIS
     Dosage: 4G Q 4 HRS IV
     Route: 042

REACTIONS (8)
  - ARRHYTHMIA [None]
  - BRADYCARDIA [None]
  - CONVULSION [None]
  - HYPERHIDROSIS [None]
  - HYPERKALAEMIA [None]
  - PULSE ABSENT [None]
  - REFUSAL OF TREATMENT BY PATIENT [None]
  - RENAL IMPAIRMENT [None]
